FAERS Safety Report 9268829 (Version 1)
Quarter: 2013Q2

REPORT INFORMATION
  Report Type: Spontaneous
  Country: US (occurrence: US)
  Receive Date: 20130502
  Receipt Date: 20130502
  Transmission Date: 20140414
  Serious: No
  Sender: FDA-Public Use
  Company Number: US-009507513-1304USA014878

PATIENT
  Age: 25 Year
  Sex: 0

DRUGS (1)
  1. NUVARING [Suspect]
     Dosage: 1 DF, UNK
     Route: 067
     Dates: start: 201004

REACTIONS (2)
  - Incorrect drug administration duration [Unknown]
  - Inappropriate schedule of drug administration [Unknown]
